FAERS Safety Report 9371134 (Version 1)
Quarter: 2013Q2

REPORT INFORMATION
  Report Type: Spontaneous
  Country: US (occurrence: None)
  Receive Date: 20130626
  Receipt Date: 20130626
  Transmission Date: 20140414
  Serious: Yes (Other)
  Sender: FDA-Public Use
  Company Number: None

PATIENT
  Age: 59 Year
  Sex: Female
  Weight: 51.3 kg

DRUGS (1)
  1. BENICAR 40 MG/DAY [Suspect]
     Indication: HYPERTENSION
     Route: 048

REACTIONS (2)
  - Colitis microscopic [None]
  - Malabsorption [None]
